FAERS Safety Report 14476579 (Version 2)
Quarter: 2018Q2

REPORT INFORMATION
  Report Type: Spontaneous
  Country: US (occurrence: US)
  Receive Date: 20180201
  Receipt Date: 20180430
  Transmission Date: 20180711
  Serious: Yes (Hospitalization, Other)
  Sender: FDA-Public Use
  Company Number: US-SA-2017SA233258

PATIENT
  Age: 81 Year
  Sex: Female

DRUGS (8)
  1. ALIROCUMAB PREFILLED PEN [Suspect]
     Active Substance: ALIROCUMAB
     Indication: TYPE V HYPERLIPIDAEMIA
     Dates: start: 20170615, end: 20180228
  2. PRALUENT [Suspect]
     Active Substance: ALIROCUMAB
     Indication: ARTERIOSCLEROSIS
     Route: 058
     Dates: start: 20170615, end: 20180228
  3. PRALUENT [Suspect]
     Active Substance: ALIROCUMAB
     Indication: ARTERIOSCLEROSIS
     Route: 058
     Dates: start: 20180317, end: 20180318
  4. ALIROCUMAB PREFILLED PEN [Suspect]
     Active Substance: ALIROCUMAB
     Indication: TYPE V HYPERLIPIDAEMIA
     Dates: start: 20180317, end: 20180318
  5. ALIROCUMAB PREFILLED PEN [Suspect]
     Active Substance: ALIROCUMAB
     Indication: ARTERIOSCLEROSIS
     Dates: start: 20180317, end: 20180318
  6. PRALUENT [Suspect]
     Active Substance: ALIROCUMAB
     Indication: TYPE V HYPERLIPIDAEMIA
     Route: 058
     Dates: start: 20180317, end: 20180318
  7. PRALUENT [Suspect]
     Active Substance: ALIROCUMAB
     Indication: TYPE V HYPERLIPIDAEMIA
     Route: 058
     Dates: start: 20170615, end: 20180228
  8. ALIROCUMAB PREFILLED PEN [Suspect]
     Active Substance: ALIROCUMAB
     Indication: ARTERIOSCLEROSIS
     Dates: start: 20170615, end: 20180228

REACTIONS (9)
  - Dysphonia [Unknown]
  - Hypersensitivity [Unknown]
  - Pharyngitis [Unknown]
  - Aphonia [Unknown]
  - Feeling abnormal [Unknown]
  - Memory impairment [Unknown]
  - Swollen tongue [Unknown]
  - Pharyngeal oedema [Unknown]
  - Hot flush [Unknown]

NARRATIVE: CASE EVENT DATE: 20171101
